FAERS Safety Report 6568740-6 (Version None)
Quarter: 2010Q1

REPORT INFORMATION
  Report Type: 
  Country: None (occurrence: None)
  Receive Date: 20100203
  Receipt Date: 20100127
  Transmission Date: 20100710
  Serious: Yes (Death, Other)
  Sender: FDA-Public Use
  Company Number: HR-MPIJNJ-2010-01004

PATIENT

DRUGS (3)
  1. VELCADE [Suspect]
     Indication: MULTIPLE MYELOMA
     Dosage: 1.3 UNK, UNK
     Dates: start: 20100105, end: 20100108
  2. ANTIBIOTICS [Concomitant]
  3. BISPHOSPHONATES [Concomitant]
     Dosage: UNK

REACTIONS (3)
  - DISEASE PROGRESSION [None]
  - PNEUMONIA [None]
  - URINARY TRACT INFECTION [None]
